FAERS Safety Report 8882387 (Version 3)
Quarter: 2014Q2

REPORT INFORMATION
  Report Type: Spontaneous
  Country: US (occurrence: US)
  Receive Date: 20121105
  Receipt Date: 20140619
  Transmission Date: 20141212
  Serious: Yes (Hospitalization)
  Sender: FDA-Public Use
  Company Number: CHPA2012US022503

PATIENT
  Age: 68 Year
  Sex: Male

DRUGS (2)
  1. VOLTAREN GEL [Suspect]
     Indication: ARTHRITIS
     Dosage: FULL STRIP, TID
     Route: 061
     Dates: start: 2011
  2. ANTIHYPERTENSIVES [Concomitant]
     Indication: HYPERTENSION
     Dosage: UNK
     Dates: start: 1995

REACTIONS (6)
  - Pneumonia [Unknown]
  - Joint dislocation [Not Recovered/Not Resolved]
  - Myalgia [Not Recovered/Not Resolved]
  - Therapeutic response changed [Unknown]
  - Drug ineffective for unapproved indication [Unknown]
  - Drug administered at inappropriate site [Unknown]
